FAERS Safety Report 11733562 (Version 1)
Quarter: 2015Q4

REPORT INFORMATION
  Report Type: Spontaneous
  Country: US (occurrence: US)
  Receive Date: 20151110
  Receipt Date: 20151110
  Transmission Date: 20160304
  Serious: No
  Sender: FDA-Public Use
  Company Number: US-ELI_LILLY_AND_COMPANY-US201205007031

PATIENT
  Age: 79 Year
  Sex: Female

DRUGS (2)
  1. FORTEO [Suspect]
     Active Substance: TERIPARATIDE
     Indication: OSTEOPOROSIS
     Dosage: 20 UG, QD
     Dates: start: 20120415, end: 20120512
  2. FORTEO [Suspect]
     Active Substance: TERIPARATIDE
     Dosage: 20 UG, QD
     Dates: start: 20120513, end: 20120513

REACTIONS (10)
  - Discomfort [Unknown]
  - Nausea [Recovered/Resolved]
  - Chills [Recovered/Resolved]
  - Bone pain [Unknown]
  - Pain in extremity [Not Recovered/Not Resolved]
  - Vomiting [Recovered/Resolved]
  - Intentional product misuse [Unknown]
  - Injection site bruising [Unknown]
  - Abdominal discomfort [Unknown]
  - Pain [Not Recovered/Not Resolved]

NARRATIVE: CASE EVENT DATE: 201204
